FAERS Safety Report 21887084 (Version 1)
Quarter: 2023Q1

REPORT INFORMATION
  Report Type: Report from Study
  Country: CO (occurrence: CO)
  Receive Date: 20230119
  Receipt Date: 20230119
  Transmission Date: 20230418
  Serious: Yes (Other)
  Sender: FDA-Public Use
  Company Number: CO-ABBVIE-4275672

PATIENT
  Sex: Male
  Weight: 71 kg

DRUGS (1)
  1. HUMIRA [Suspect]
     Active Substance: ADALIMUMAB
     Indication: Juvenile idiopathic arthritis
     Route: 058
     Dates: start: 20210426, end: 20221205

REACTIONS (4)
  - Pancreatic failure [Recovering/Resolving]
  - Influenza [Not Recovered/Not Resolved]
  - Blood glucose decreased [Recovering/Resolving]
  - Cough [Unknown]

NARRATIVE: CASE EVENT DATE: 20220101
